FAERS Safety Report 8907492 (Version 1)
Quarter: 2012Q4

REPORT INFORMATION
  Report Type: 
  Country: BR (occurrence: BR)
  Receive Date: 20121114
  Receipt Date: 20121114
  Transmission Date: 20130627
  Serious: Yes (Other)
  Sender: FDA-Public Use
  Company Number: BR-PFIZER INC-2012283711

PATIENT
  Sex: Female

DRUGS (1)
  1. PRISTIQ [Suspect]
     Dosage: UNK
     Dates: start: 2011

REACTIONS (5)
  - Drug dependence [Unknown]
  - Bedridden [Unknown]
  - Dizziness [Unknown]
  - Malaise [Unknown]
  - Eye disorder [Unknown]
